FAERS Safety Report 8976416 (Version 1)
Quarter: 2012Q4

REPORT INFORMATION
  Report Type: Report from Study
  Country: CA (occurrence: CA)
  Receive Date: 20121220
  Receipt Date: 20121220
  Transmission Date: 20130627
  Serious: Yes (Other)
  Sender: FDA-Public Use
  Company Number: CA-ROCHE-1166727

PATIENT
  Age: 81 Year
  Sex: Male
  Weight: 31.33 kg

DRUGS (2)
  1. OMALIZUMAB [Suspect]
     Indication: ASTHMA
     Route: 058
     Dates: start: 20060302
  2. PREDNISONE [Concomitant]

REACTIONS (12)
  - Pneumonia [Recovering/Resolving]
  - Apnoea [Unknown]
  - Nasopharyngitis [Unknown]
  - Nasal congestion [Unknown]
  - Productive cough [Unknown]
  - Dyspnoea [Unknown]
  - Hypersomnia [Unknown]
  - Decreased appetite [Unknown]
  - Dysphonia [Unknown]
  - Throat irritation [Unknown]
  - Cough [Unknown]
  - Influenza like illness [Recovering/Resolving]
